FAERS Safety Report 8801769 (Version 2)
Quarter: 2015Q1

REPORT INFORMATION
  Report Type: Report from Study
  Country: US (occurrence: US)
  Receive Date: 20120921
  Receipt Date: 20150227
  Transmission Date: 20150721
  Serious: Yes (Death)
  Sender: FDA-Public Use
  Company Number: US-ROCHE-1097630

PATIENT
  Sex: Male
  Weight: 70.5 kg

DRUGS (45)
  1. AVASTIN [Suspect]
     Active Substance: BEVACIZUMAB
     Dosage: 02/AUG/2004
     Route: 042
  2. AVASTIN [Suspect]
     Active Substance: BEVACIZUMAB
     Dosage: 16/AUG/2004
     Route: 042
  3. AVASTIN [Suspect]
     Active Substance: BEVACIZUMAB
     Dosage: 06/DEC/2004
     Route: 042
  4. AVASTIN [Suspect]
     Active Substance: BEVACIZUMAB
     Dosage: 20/DEC/2004
     Route: 042
  5. AVASTIN [Suspect]
     Active Substance: BEVACIZUMAB
     Dosage: 15/JUN/2005
     Route: 042
  6. 5-FLUOROURACIL [Concomitant]
     Active Substance: FLUOROURACIL
     Route: 065
  7. KYTRIL [Concomitant]
     Active Substance: GRANISETRON HYDROCHLORIDE
     Indication: DIARRHOEA
     Route: 048
  8. LEUCOVORIN [Concomitant]
     Active Substance: LEUCOVORIN
     Route: 065
  9. CAMPTOTHECIN [Concomitant]
     Active Substance: CAMPTOTHECIN
     Route: 065
  10. LORCET PLUS [Concomitant]
     Active Substance: ACETAMINOPHEN\HYDROCODONE BITARTRATE
     Indication: PAIN
     Route: 048
  11. KYTRIL [Concomitant]
     Active Substance: GRANISETRON HYDROCHLORIDE
     Indication: NAUSEA
  12. CAMPTOTHECIN [Concomitant]
     Active Substance: CAMPTOTHECIN
     Route: 065
  13. ARANESP [Concomitant]
     Active Substance: DARBEPOETIN ALFA
     Indication: ANAEMIA
     Route: 058
  14. AVASTIN [Suspect]
     Active Substance: BEVACIZUMAB
     Dosage: 17/MAY/2004
     Route: 042
  15. AVASTIN [Suspect]
     Active Substance: BEVACIZUMAB
     Dosage: 10/NOV/2004
     Route: 042
  16. AVASTIN [Suspect]
     Active Substance: BEVACIZUMAB
     Dosage: 24/AUG/2005
     Route: 042
  17. AVASTIN [Suspect]
     Active Substance: BEVACIZUMAB
     Dosage: 27/SEP/2005
     Route: 042
  18. XELODA [Concomitant]
     Active Substance: CAPECITABINE
     Route: 048
  19. OXALIPLATIN. [Concomitant]
     Active Substance: OXALIPLATIN
     Route: 065
  20. LOMOTIL (UNITED STATES) [Concomitant]
     Route: 065
  21. 5-FLUOROURACIL [Concomitant]
     Active Substance: FLUOROURACIL
     Route: 065
  22. AVASTIN [Suspect]
     Active Substance: BEVACIZUMAB
     Dosage: ON 01/JUN/2004 AND 16/JUN/2004
     Route: 042
  23. AVASTIN [Suspect]
     Active Substance: BEVACIZUMAB
     Dosage: 30/AUG/2004
     Route: 042
  24. AVASTIN [Suspect]
     Active Substance: BEVACIZUMAB
     Dosage: 01/FEB/2005
     Route: 042
  25. AVASTIN [Suspect]
     Active Substance: BEVACIZUMAB
     Dosage: 20/APR/2005
     Route: 042
  26. AVASTIN [Suspect]
     Active Substance: BEVACIZUMAB
     Dosage: 18/MAY/2005
     Route: 042
  27. PREVACID [Concomitant]
     Active Substance: LANSOPRAZOLE
     Route: 065
  28. AVASTIN [Suspect]
     Active Substance: BEVACIZUMAB
     Indication: COLON CANCER
     Dosage: 5 MG/KG?SAME DAY ALSO RECEIVED 317 MG
     Route: 042
     Dates: start: 20040426
  29. AVASTIN [Suspect]
     Active Substance: BEVACIZUMAB
     Route: 042
  30. AVASTIN [Suspect]
     Active Substance: BEVACIZUMAB
     Dosage: 15/FEB/2005
     Route: 042
  31. AVASTIN [Suspect]
     Active Substance: BEVACIZUMAB
     Dosage: 10/AUG/2005
     Route: 042
  32. IMODIUM [Concomitant]
     Active Substance: LOPERAMIDE HYDROCHLORIDE
     Indication: NAUSEA
  33. IMODIUM [Concomitant]
     Active Substance: LOPERAMIDE HYDROCHLORIDE
     Indication: DIARRHOEA
  34. LEUCOVORIN [Concomitant]
     Active Substance: LEUCOVORIN
     Route: 065
  35. ARANESP [Concomitant]
     Active Substance: DARBEPOETIN ALFA
     Route: 065
  36. AVASTIN [Suspect]
     Active Substance: BEVACIZUMAB
     Dosage: 30/JUN/2004, 19/JUL/2014
     Route: 042
  37. AVASTIN [Suspect]
     Active Substance: BEVACIZUMAB
     Dosage: 28/SEP/2004
     Route: 042
  38. AVASTIN [Suspect]
     Active Substance: BEVACIZUMAB
     Dosage: 08/MAR/2005, 20/MAR/2005
     Route: 042
  39. 5-FLUOROURACIL [Concomitant]
     Active Substance: FLUOROURACIL
     Route: 065
  40. CAMPTOTHECIN [Concomitant]
     Active Substance: CAMPTOTHECIN
     Route: 065
  41. AVASTIN [Suspect]
     Active Substance: BEVACIZUMAB
     Dosage: 25/OCT/2004
     Route: 042
  42. AVASTIN [Suspect]
     Active Substance: BEVACIZUMAB
     Dosage: 04/MAY/2005
     Route: 042
  43. DECADRON [Concomitant]
     Active Substance: DEXAMETHASONE
     Route: 065
  44. LEUCOVORIN [Concomitant]
     Active Substance: LEUCOVORIN
     Route: 065
  45. 5-FLUOROURACIL [Concomitant]
     Active Substance: FLUOROURACIL
     Route: 065

REACTIONS (3)
  - Diarrhoea [Unknown]
  - Death [Fatal]
  - Nausea [Unknown]
